FAERS Safety Report 24655024 (Version 1)
Quarter: 2024Q4

REPORT INFORMATION
  Report Type: Report from Study
  Country: IT (occurrence: IT)
  Receive Date: 20241122
  Receipt Date: 20241122
  Transmission Date: 20250115
  Serious: Yes (Other)
  Sender: ABBVIE
  Company Number: IT-MINISAL02-1010196

PATIENT
  Age: 72 Year
  Sex: Male
  Weight: 67 kg

DRUGS (2)
  1. LEUPROLIDE ACETATE [Suspect]
     Active Substance: LEUPROLIDE ACETATE
     Indication: Product used for unknown indication
     Dosage: 11.25 MILLIGRAM, Q3MONTHS
     Route: 030
     Dates: start: 20101104
  2. ERLEADA [Concomitant]
     Active Substance: APALUTAMIDE
     Indication: Product used for unknown indication
     Dosage: UNKNOWN
     Dates: start: 20211102

REACTIONS (1)
  - Electrocardiogram QT prolonged [Unknown]

NARRATIVE: CASE EVENT DATE: 20241016
